FAERS Safety Report 21918388 (Version 7)
Quarter: 2023Q2

REPORT INFORMATION
  Report Type: Report from Study
  Country: AU (occurrence: None)
  Receive Date: 20230127
  Receipt Date: 20230519
  Transmission Date: 20230722
  Serious: Yes (Hospitalization)
  Sender: FDA-Public Use
  Company Number: AU-ROCHE-3271764

PATIENT
  Age: 61 Year
  Sex: Male
  Weight: 61 kg

DRUGS (18)
  1. GLOFITAMAB [Suspect]
     Active Substance: GLOFITAMAB
     Indication: Diffuse large B-cell lymphoma
     Dosage: ON 09/MAR/2023, LAST DOSE OF GLOFITAMAB WAS GIVE PRIOR TO SAE.
     Route: 042
     Dates: start: 20230131
  2. RITUXIMAB [Suspect]
     Active Substance: RITUXIMAB
     Indication: Diffuse large B-cell lymphoma
     Dosage: 19/JAN/2023, RECEIVED MOST RECENT DOSE, ON 30/MAR/2023, HE RECEIVED THE MOST RECENT DOSE OF RITUXIMA
     Route: 042
     Dates: start: 20221230
  3. CYCLOPHOSPHAMIDE [Suspect]
     Active Substance: CYCLOPHOSPHAMIDE
     Indication: Diffuse large B-cell lymphoma
     Dosage: ON 30/MAR/2023, HE HAD RECEIVED THE LAST DOSE PRIOR TO SAE, ON 02/MAR/2023, HE RECEIVED THE MOST REC
     Route: 042
     Dates: start: 20221230
  4. VINCRISTINE [Suspect]
     Active Substance: VINCRISTINE
     Indication: Diffuse large B-cell lymphoma
     Dosage: ON 30/MAR/2023, THE PATIENT RECEIVED THE LAST DOSE PRIOR TO SAE, ON 02/MAR/2023, HE RECEIVED THE MOS
     Route: 042
     Dates: start: 20221230
  5. DOXORUBICIN [Suspect]
     Active Substance: DOXORUBICIN
     Indication: Diffuse large B-cell lymphoma
     Dosage: ON 30/MAR/2023, THE PATIENT RECEIVED THE LAST DOSE PRIOR TO SAE, ON 02/MAR/2023, HE RECEIVED THE MOS
     Route: 042
     Dates: start: 20221230
  6. PREDNISOLONE [Suspect]
     Active Substance: PREDNISOLONE
     Indication: Diffuse large B-cell lymphoma
     Dosage: ON 04/APR/2023, THE PATIENT RECEIVED THE LAST DOSE PRIOR TO SAE, ON 06/MAR/2023, HE RECEIVED THE MOS
     Route: 048
     Dates: start: 20221230
  7. ACETAMINOPHEN [Concomitant]
     Active Substance: ACETAMINOPHEN
     Indication: Pain
     Dates: start: 20221230
  8. MOVICOL [Concomitant]
     Active Substance: POLYETHYLENE GLYCOL 3350\POTASSIUM CHLORIDE\SODIUM BICARBONATE\SODIUM CHLORIDE
     Indication: Constipation
     Dates: start: 20221230
  9. METOPROLOL [Concomitant]
     Active Substance: METOPROLOL
     Indication: Nausea
     Dates: start: 20220130
  10. OXYCODONE [Concomitant]
     Active Substance: OXYCODONE
     Indication: Pain
     Dates: start: 20230116
  11. SULFAMETHOXAZOLE\TRIMETHOPRIM [Concomitant]
     Active Substance: SULFAMETHOXAZOLE\TRIMETHOPRIM
     Dosage: 1 TABLET
     Dates: start: 20230116
  12. VALACYCLOVIR [Concomitant]
     Active Substance: VALACYCLOVIR HYDROCHLORIDE
     Dates: start: 20230118
  13. ESOMEPRAZOLE [Concomitant]
     Active Substance: ESOMEPRAZOLE
     Dates: start: 20230118
  14. ENTECAVIR [Concomitant]
     Active Substance: ENTECAVIR
     Dates: start: 20230124
  15. ALLOPURINOL [Concomitant]
     Active Substance: ALLOPURINOL
     Route: 048
     Dates: start: 20221215
  16. BACTRIM [Concomitant]
     Active Substance: SULFAMETHOXAZOLE\TRIMETHOPRIM
     Dosage: 800/160 MG
     Route: 048
     Dates: start: 20221221
  17. VALACYCLOVIR [Concomitant]
     Active Substance: VALACYCLOVIR HYDROCHLORIDE
     Route: 048
     Dates: start: 20221230
  18. OXYCODONE HYDROCHLORIDE [Concomitant]
     Active Substance: OXYCODONE HYDROCHLORIDE
     Indication: Pain
     Route: 048
     Dates: start: 202212

REACTIONS (5)
  - Arthritis [Not Recovered/Not Resolved]
  - Sepsis [Unknown]
  - Urinary tract infection [Recovering/Resolving]
  - Arthritis [Recovered/Resolved]
  - Hypotension [Recovered/Resolved]

NARRATIVE: CASE EVENT DATE: 20230124
